FAERS Safety Report 4776446-9 (Version None)
Quarter: 2005Q3

REPORT INFORMATION
  Report Type: 
  Country: None (occurrence: None)
  Receive Date: 20050915
  Receipt Date: 20050901
  Transmission Date: 20060218
  Serious: Yes (Other)
  Sender: FDA-Public Use
  Company Number: GRP05000222

PATIENT
  Sex: Female

DRUGS (2)
  1. ACTONEL [Suspect]
     Dosage: 35 MG, 1 /WEEK, ORAL
     Route: 048
     Dates: start: 20030101
  2. CALCIUM CARBONATE W/CODEINE (CALCIUM CARBOANTE, COLECALCIFEROL) [Concomitant]

REACTIONS (1)
  - MITRAL VALVE STENOSIS [None]
